FAERS Safety Report 7620909-5 (Version None)
Quarter: 2011Q3

REPORT INFORMATION
  Report Type: 
  Country: None (occurrence: None)
  Receive Date: 20110719
  Receipt Date: 20101118
  Transmission Date: 20111222
  Serious: Yes (Hospitalization, Other)
  Sender: FDA-Public Use
  Company Number: US-BAYER-200937716NA

PATIENT
  Age: 35 Year
  Sex: Female
  Weight: 74 kg

DRUGS (31)
  1. TRASYLOL [Suspect]
     Indication: TRICUSPID VALVE REPLACEMENT
     Dosage: 1 ML, ONCE (INITIAL)
     Route: 042
     Dates: start: 20000317, end: 20000317
  2. HEPARIN [Concomitant]
     Dosage: 3300 U, UNK
     Route: 042
     Dates: start: 20000317, end: 20000317
  3. TRASYLOL [Suspect]
     Dosage: 200 ML (LOADING DOSE)
     Route: 042
     Dates: start: 20000317, end: 20000317
  4. FENTANYL-100 [Concomitant]
     Dosage: UNK
     Route: 042
     Dates: start: 20000317, end: 20000317
  5. LASIX [Concomitant]
     Dosage: 140 MG, UNK
     Route: 042
     Dates: start: 20000317, end: 20000317
  6. AMIODARONE HCL [Concomitant]
     Dosage: 60 MG, UNK
     Route: 042
     Dates: start: 20000317, end: 20000317
  7. PROTAMINE SULFATE [Concomitant]
     Dosage: 50 MG, UNK
     Route: 042
     Dates: start: 20000317, end: 20000317
  8. ESMOLOL [Concomitant]
     Dosage: 30 MG, UNK
     Route: 042
     Dates: start: 20000317, end: 20000317
  9. SOLU-MEDROL [Concomitant]
     Dosage: 4 MG, UNK
     Dates: start: 20000317, end: 20000317
  10. TRASYLOL [Suspect]
     Dosage: 200 ML (PRIME PUMP)
     Route: 042
     Dates: start: 20000317, end: 20000317
  11. SPIRONOLACTONE [Concomitant]
     Dosage: 50 MG, QD
  12. LIDOCAINE [Concomitant]
     Dosage: 100 MG, UNK
     Route: 042
     Dates: start: 20000317, end: 20000317
  13. PROPOFOL [Concomitant]
     Dosage: UNK
     Route: 042
     Dates: start: 20000317, end: 20000317
  14. CALCIUM CHLORIDE [Concomitant]
     Dosage: UNK
     Route: 042
     Dates: start: 20000317, end: 20000317
  15. ALBUMIN (HUMAN) [Concomitant]
     Dosage: 5 %
     Dates: start: 20000317, end: 20000317
  16. SODIUM BICARBONATE [Concomitant]
     Dosage: 50 MEQ, UNK
     Route: 042
     Dates: start: 20000317
  17. NITRO-BID [Concomitant]
     Dosage: EVERY 12 HRS
  18. EPINEPHRINE [Concomitant]
     Dosage: UNK
     Route: 042
     Dates: start: 20000317, end: 20000317
  19. CEFAZOLIN [Concomitant]
     Dosage: 1000 MG, UNK
     Route: 042
     Dates: start: 20000317, end: 20000317
  20. MAGNESIUM [Concomitant]
     Dosage: 2 G, UNK
     Route: 042
     Dates: start: 20000317
  21. FRESH FROZEN PLASMA [Concomitant]
     Dosage: 2 U, UNK
     Route: 042
     Dates: start: 20000317, end: 20000317
  22. PLATELETS [Concomitant]
     Dosage: 20 U, UNK
     Route: 042
     Dates: start: 20000317, end: 20000317
  23. TRASYLOL [Suspect]
     Dosage: 50 ML/HR (INFUSION)
     Route: 042
     Dates: start: 20000317, end: 20000317
  24. HEPARIN [Concomitant]
     Dosage: 10000 U
     Dates: start: 20000317, end: 20000317
  25. NIPRIDE [Concomitant]
     Dosage: UNK
     Route: 042
     Dates: start: 20000317, end: 20000317
  26. MANNITOL [Concomitant]
     Dosage: 50 G, UNK
     Route: 042
     Dates: start: 20000317
  27. DIAZEPAM [Concomitant]
     Dosage: UNK UNK, PRN
  28. ANCEF [Concomitant]
     Dosage: 1 G, UNK
     Route: 042
     Dates: start: 20000317
  29. VERSED [Concomitant]
     Dosage: UNK
     Route: 042
     Dates: start: 20000317, end: 20000317
  30. PAVULON [Concomitant]
     Dosage: UNK
     Route: 042
     Dates: start: 20000317, end: 20000317
  31. ALBUMIN (HUMAN) [Concomitant]
     Dosage: 500 UNK
     Route: 042
     Dates: start: 20000317, end: 20000317

REACTIONS (6)
  - RENAL FAILURE [None]
  - PAIN [None]
  - RENAL FAILURE ACUTE [None]
  - INJURY [None]
  - PSYCHIATRIC SYMPTOM [None]
  - UNEVALUABLE EVENT [None]
